FAERS Safety Report 14834347 (Version 9)
Quarter: 2019Q2

REPORT INFORMATION
  Report Type: Spontaneous
  Country: JP (occurrence: JP)
  Receive Date: 20180501
  Receipt Date: 20190626
  Transmission Date: 20190711
  Serious: Yes (Death, Hospitalization, Other)
  Sender: FDA-Public Use
  Company Number: JP-PFIZER INC-2018158957

PATIENT
  Age: 51 Year
  Sex: Female

DRUGS (6)
  1. IBRANCE [Suspect]
     Active Substance: PALBOCICLIB
     Indication: BREAST CANCER RECURRENT
     Dosage: 125 MG, DAILY
     Route: 048
     Dates: start: 20180227, end: 20180302
  2. CRAVIT [Suspect]
     Active Substance: LEVOFLOXACIN
     Indication: PYREXIA
     Dosage: UNK
     Dates: start: 20180301
  3. FASLODEX [Suspect]
     Active Substance: FULVESTRANT
     Dosage: UNK
     Dates: start: 20180313
  4. RANMARK [Concomitant]
     Active Substance: DENOSUMAB
  5. FASLODEX [Suspect]
     Active Substance: FULVESTRANT
     Dosage: UNK
     Dates: start: 20180227
  6. IBRANCE [Suspect]
     Active Substance: PALBOCICLIB
     Dosage: 125 MG, DAILY
     Route: 048
     Dates: start: 20180307

REACTIONS (10)
  - Hypersensitivity [Unknown]
  - Cell marker increased [Unknown]
  - Vaginal haemorrhage [Unknown]
  - Interstitial lung disease [Recovering/Resolving]
  - Blood pressure decreased [Unknown]
  - Pyrexia [Recovered/Resolved]
  - Neoplasm progression [Fatal]
  - Hepatic failure [Fatal]
  - Neutrophil count decreased [Recovered/Resolved]
  - Vomiting [Unknown]

NARRATIVE: CASE EVENT DATE: 20180228
